FAERS Safety Report 6868056-4 (Version None)
Quarter: 2010Q3

REPORT INFORMATION
  Report Type: 
  Country: None (occurrence: None)
  Receive Date: 20100722
  Receipt Date: 20080604
  Transmission Date: 20110219
  Serious: No
  Sender: FDA-Public Use
  Company Number: US-PFIZER INC-2008039112

PATIENT
  Sex: Female
  Weight: 63.5 kg

DRUGS (8)
  1. CHANTIX [Suspect]
     Indication: SMOKING CESSATION THERAPY
     Dates: start: 20080301
  2. VALSARTAN [Concomitant]
  3. CLONIDINE [Concomitant]
  4. LOTREL [Concomitant]
  5. ATENOLOL [Concomitant]
  6. PROZAC [Concomitant]
  7. LEXAPRO [Concomitant]
  8. TOPAMAX [Concomitant]

REACTIONS (2)
  - INCORRECT DOSE ADMINISTERED [None]
  - NAUSEA [None]
